FAERS Safety Report 8888778 (Version 2)
Quarter: 2012Q4

REPORT INFORMATION
  Report Type: Report from Study
  Country: GB (occurrence: GB)
  Receive Date: 20121106
  Receipt Date: 20121114
  Transmission Date: 20130627
  Serious: Yes (Hospitalization)
  Sender: FDA-Public Use
  Company Number: GB-MILLENNIUM PHARMACEUTICALS, INC.-2012-07644

PATIENT

DRUGS (5)
  1. VELCADE [Suspect]
     Indication: DIFFUSE LARGE B-CELL LYMPHOMA
     Dosage: 2.6 mg, UNK
     Route: 065
     Dates: start: 20121016, end: 20121023
  2. RITUXIMAB [Suspect]
     Indication: DIFFUSE LARGE B-CELL LYMPHOMA
     Dosage: 750 mg, UNK
     Route: 065
     Dates: start: 20120925, end: 20121016
  3. CYCLOPHOSPHAMIDE [Suspect]
     Indication: DIFFUSE LARGE B-CELL LYMPHOMA
     Dosage: 1500 mg, UNK
     Route: 065
     Dates: start: 20120925, end: 20121016
  4. DOXORUBICIN [Suspect]
     Indication: DIFFUSE LARGE B-CELL LYMPHOMA
     Dosage: 100 mg, UNK
     Dates: start: 20120925, end: 20121016
  5. VINCRISTINE [Suspect]
     Indication: DIFFUSE LARGE B-CELL LYMPHOMA
     Dosage: 2 mg, UNK
     Route: 065
     Dates: start: 20120925, end: 20121016

REACTIONS (1)
  - Mucosal inflammation [Recovered/Resolved with Sequelae]
